FAERS Safety Report 18660362 (Version 1)
Quarter: 2020Q4

REPORT INFORMATION
  Report Type: Spontaneous
  Country: AU (occurrence: AU)
  Receive Date: 20201223
  Receipt Date: 20201223
  Transmission Date: 20210114
  Serious: No
  Sender: FDA-Public Use
  Company Number: AU-LUPIN PHARMACEUTICALS INC.-2020-06716

PATIENT
  Age: 7 Year
  Sex: Female

DRUGS (2)
  1. CEPHALEXIN. [Suspect]
     Active Substance: CEPHALEXIN
     Indication: GRANULOMA SKIN
     Dosage: UNK
     Route: 065
  2. ERYTHROMYCIN. [Suspect]
     Active Substance: ERYTHROMYCIN
     Indication: GRANULOMA SKIN
     Dosage: UNK
     Route: 065

REACTIONS (1)
  - Drug ineffective [Unknown]
